FAERS Safety Report 6099379-7 (Version None)
Quarter: 2009Q1

REPORT INFORMATION
  Report Type: 
  Country: None (occurrence: None)
  Receive Date: 20090303
  Receipt Date: 20090224
  Transmission Date: 20090719
  Serious: Yes (Other)
  Sender: FDA-Public Use
  Company Number: US-PFIZER INC-2009160925

PATIENT
  Sex: Female

DRUGS (6)
  1. BEXTRA [Suspect]
     Dosage: 10 MG, UNK
  2. MESTINON [Concomitant]
  3. RANITIDINE [Concomitant]
  4. NEXIUM [Concomitant]
  5. FLOMAX [Concomitant]
  6. MIACALCIN [Concomitant]

REACTIONS (1)
  - CEREBROVASCULAR ACCIDENT [None]
